FAERS Safety Report 15543209 (Version 3)
Quarter: 2018Q4

REPORT INFORMATION
  Report Type: Spontaneous
  Country: NO (occurrence: NO)
  Receive Date: 20181023
  Receipt Date: 20181121
  Transmission Date: 20190205
  Serious: Yes (Life-Threatening, Disabling)
  Sender: FDA-Public Use
  Company Number: NO-PFIZER INC-2018427769

PATIENT
  Age: 40 Year
  Sex: Male
  Weight: 73 kg

DRUGS (19)
  1. QUETIAPINE. [Concomitant]
     Active Substance: QUETIAPINE
     Indication: ANXIETY
     Dosage: UNK
     Dates: end: 201805
  2. ATARAX [ALPRAZOLAM] [Concomitant]
     Active Substance: ALPRAZOLAM
     Indication: ANXIETY
     Dosage: UNK
     Route: 048
     Dates: end: 201805
  3. VIVAL [Concomitant]
     Active Substance: DIAZEPAM
     Indication: ANXIETY
     Dosage: UNK
     Route: 048
     Dates: end: 201805
  4. RISPERDAL [Concomitant]
     Active Substance: RISPERIDONE
     Indication: ANXIETY
     Dosage: UNK
     Route: 048
     Dates: end: 201805
  5. XANOR [Concomitant]
     Active Substance: ALPRAZOLAM
     Indication: ANXIETY
     Dosage: UNK
     Route: 048
     Dates: end: 201805
  6. ZOLOFT [Concomitant]
     Active Substance: SERTRALINE HYDROCHLORIDE
     Indication: ANXIETY
     Dosage: UNK
     Route: 048
     Dates: end: 201805
  7. ZELDOX [ZIPRASIDONE HYDROCHLORIDE] [Concomitant]
     Indication: ANXIETY
     Dosage: UNK
     Route: 048
     Dates: end: 201805
  8. ABILIFY [Concomitant]
     Active Substance: ARIPIPRAZOLE
     Indication: ANXIETY
     Dosage: UNK
     Route: 048
     Dates: end: 201805
  9. WELLBUTRIN [Concomitant]
     Active Substance: BUPROPION HYDROCHLORIDE
     Indication: ANXIETY
     Dosage: UNK
     Dates: end: 201805
  10. IMOVANE [Concomitant]
     Active Substance: ZOPICLONE
     Indication: ANXIETY
     Dosage: UNK
     Route: 048
     Dates: end: 201805
  11. ZYPREXA [Concomitant]
     Active Substance: OLANZAPINE
     Indication: ANXIETY
     Dosage: UNK
     Route: 048
     Dates: end: 201805
  12. TRILAFON [Concomitant]
     Active Substance: PERPHENAZINE
     Indication: ANXIETY
     Dosage: UNK
     Route: 048
     Dates: end: 201805
  13. SOBRIL [Suspect]
     Active Substance: OXAZEPAM
     Indication: ANXIETY
     Dosage: 50 MG, 3X/DAY
     Dates: start: 20080101, end: 20180101
  14. VALLERGAN [Concomitant]
     Active Substance: TRIMEPRAZINE
     Indication: ANXIETY
     Dosage: UNK
     Route: 048
     Dates: end: 201805
  15. HEMINEVRIN [Concomitant]
     Active Substance: CLOMETHIAZOLE
     Indication: ANXIETY
     Dosage: UNK
     Route: 048
     Dates: end: 201805
  16. BUSPIRONE [Concomitant]
     Active Substance: BUSPIRONE HYDROCHLORIDE
     Indication: ANXIETY
     Dosage: UNK
     Dates: end: 201805
  17. OLANZAPINE. [Concomitant]
     Active Substance: OLANZAPINE
     Indication: ANXIETY
     Dosage: UNK
     Dates: end: 201805
  18. SEROQUEL [Concomitant]
     Active Substance: QUETIAPINE FUMARATE
     Indication: ANXIETY
     Dosage: UNK
     Route: 048
     Dates: end: 201805
  19. TRUXAL [Concomitant]
     Active Substance: CHLORPROTHIXENE
     Indication: ANXIETY
     Dosage: UNK
     Route: 048
     Dates: end: 201805

REACTIONS (6)
  - Muscle spasms [Not Recovered/Not Resolved]
  - Vision blurred [Not Recovered/Not Resolved]
  - Balance disorder [Not Recovered/Not Resolved]
  - Headache [Not Recovered/Not Resolved]
  - Abnormal faeces [Not Recovered/Not Resolved]
  - Emotional disorder [Not Recovered/Not Resolved]

NARRATIVE: CASE EVENT DATE: 20180101
